FAERS Safety Report 6130622-1 (Version None)
Quarter: 2009Q1

REPORT INFORMATION
  Report Type: 
  Country: None (occurrence: None)
  Receive Date: 20090325
  Receipt Date: 20090313
  Transmission Date: 20090719
  Serious: Yes (Other)
  Sender: FDA-Public Use
  Company Number: FR-TEVA-187018ISR

PATIENT
  Sex: Female

DRUGS (2)
  1. SALBUTAMOL [Suspect]
     Indication: BRONCHITIS
     Route: 055
  2. CLARITHROMYCIN [Concomitant]
     Indication: BRONCHITIS
     Route: 048
     Dates: start: 20090217, end: 20090221

REACTIONS (3)
  - ASTHENIA [None]
  - EUPHORIC MOOD [None]
  - TACHYCARDIA [None]
